FAERS Safety Report 8505521-8 (Version None)
Quarter: 2012Q2

REPORT INFORMATION
  Report Type: 
  Country: None (occurrence: None)
  Receive Date: 20120405
  Receipt Date: 20090922
  Transmission Date: 20120825
  Serious: Yes (Disabling, Other)
  Sender: FDA-Public Use
  Company Number: PHEH2009US10735

PATIENT
  Sex: Female

DRUGS (1)
  1. RECLAST [Suspect]
     Dosage: INFUSION
     Dates: start: 20090825

REACTIONS (8)
  - BONE PAIN [None]
  - PAIN [None]
  - HEADACHE [None]
  - BACK PAIN [None]
  - PAIN IN EXTREMITY [None]
  - DISABILITY [None]
  - MUSCULOSKELETAL PAIN [None]
  - INSOMNIA [None]
